FAERS Safety Report 24553030 (Version 2)
Quarter: 2024Q4

REPORT INFORMATION
  Report Type: Spontaneous
  Country: US (occurrence: US)
  Receive Date: 20241027
  Receipt Date: 20241119
  Transmission Date: 20250114
  Serious: No
  Sender: BAUSCH AND LOMB
  Company Number: US-BAUSCHBL-2024BNL036125

PATIENT
  Age: 80 Year
  Sex: Female

DRUGS (2)
  1. LATANOPROST [Suspect]
     Active Substance: LATANOPROST
     Indication: Glaucoma
     Dosage: SEVERAL YEARS AGO EXACT DATE NOT REMEMBER
     Route: 047
  2. LATANOPROST [Suspect]
     Active Substance: LATANOPROST
     Route: 047

REACTIONS (8)
  - Limb injury [Unknown]
  - Injury [Unknown]
  - Product closure removal difficult [Unknown]
  - Wrong technique in product usage process [Unknown]
  - Product dose omission in error [Unknown]
  - Product use issue [Unknown]
  - Product complaint [Unknown]
  - Product quality issue [Unknown]

NARRATIVE: CASE EVENT DATE: 20241001
